FAERS Safety Report 9941827 (Version 1)
Quarter: 2014Q1

REPORT INFORMATION
  Report Type: Spontaneous
  Country: PR (occurrence: PR)
  Receive Date: 20140303
  Receipt Date: 20140303
  Transmission Date: 20141002
  Serious: No
  Sender: FDA-Public Use
  Company Number: PR-ABBVIE-13P-131-1043090-00

PATIENT
  Sex: Female
  Weight: 60.84 kg

DRUGS (6)
  1. HUMIRA [Suspect]
     Indication: JUVENILE IDIOPATHIC ARTHRITIS
     Route: 058
     Dates: start: 20121214, end: 20130111
  2. HUMIRA [Suspect]
     Route: 058
  3. SULFASALAZINE [Concomitant]
     Indication: JUVENILE IDIOPATHIC ARTHRITIS
     Route: 048
     Dates: start: 201103
  4. PLAQUENIL [Concomitant]
     Indication: JUVENILE IDIOPATHIC ARTHRITIS
     Route: 048
     Dates: start: 201103, end: 201207
  5. ATARAX [Concomitant]
     Indication: URTICARIA
     Dosage: 1 TAB AT BEDTIME
     Route: 048
  6. NEXIUM [Concomitant]
     Indication: ABDOMINAL DISCOMFORT
     Route: 048
     Dates: start: 201211

REACTIONS (2)
  - Pharyngitis [Unknown]
  - Urinary tract infection [Unknown]
